FAERS Safety Report 23062340 (Version 1)
Quarter: 2023Q4

REPORT INFORMATION
  Report Type: Spontaneous
  Country: US (occurrence: US)
  Receive Date: 20231013
  Receipt Date: 20231013
  Transmission Date: 20240110
  Serious: No
  Sender: FDA-Public Use
  Company Number: US-SHIELD THERAPEUTICS-US-STX-23-00068

PATIENT
  Age: 78 Year
  Sex: Female

DRUGS (1)
  1. ACCRUFER [Suspect]
     Active Substance: FERRIC MALTOL
     Indication: Product used for unknown indication
     Dosage: 30 MILLIGRAM, 1 CAPSULE BY MOUTH TWICE A DAY 1 HOUR BEFORE OR 2 HOURS AFTER MEALS
     Route: 048

REACTIONS (1)
  - Diarrhoea [Unknown]
